FAERS Safety Report 9312647 (Version 1)
Quarter: 2013Q2

REPORT INFORMATION
  Report Type: Spontaneous
  Country: CN (occurrence: CN)
  Receive Date: 20130528
  Receipt Date: 20130528
  Transmission Date: 20140414
  Serious: Yes (Other)
  Sender: FDA-Public Use
  Company Number: CN-JNJFOC-20130509056

PATIENT
  Age: 24 Month
  Sex: Male
  Weight: 15 kg

DRUGS (2)
  1. CHILDREN^S MOTRIN [Suspect]
     Route: 048
  2. CHILDREN^S MOTRIN [Suspect]
     Indication: ACCIDENTAL EXPOSURE TO PRODUCT
     Route: 048
     Dates: start: 20130515

REACTIONS (2)
  - Accidental exposure to product by child [Unknown]
  - Product quality issue [None]
